FAERS Safety Report 7357902-6 (Version None)
Quarter: 2011Q1

REPORT INFORMATION
  Report Type: 
  Country: None (occurrence: None)
  Receive Date: 20110307
  Receipt Date: 20100104
  Transmission Date: 20110831
  Serious: No
  Sender: FDA-Public Use
  Company Number: AEDEU201000004

PATIENT
  Age: 42 Year
  Sex: Female
  Weight: 70 kg

DRUGS (3)
  1. BEROTEC [Concomitant]
  2. MIRTAZAPIN [Concomitant]
  3. PROLASTIN [Suspect]
     Indication: ALPHA-1 ANTI-TRYPSIN DEFICIENCY
     Dosage: 4 GM; 1X; IV
     Route: 042
     Dates: start: 20091207

REACTIONS (1)
  - URTICARIA [None]
